FAERS Safety Report 25861353 (Version 1)
Quarter: 2025Q3

REPORT INFORMATION
  Report Type: Spontaneous
  Country: EU (occurrence: EU)
  Receive Date: 20250929
  Receipt Date: 20250929
  Transmission Date: 20251020
  Serious: Yes (Other)
  Sender: JOHNSON AND JOHNSON
  Company Number: EU-ASPEN-GLO2025PT008491

PATIENT
  Age: 54 Year
  Sex: Female

DRUGS (3)
  1. INFLIXIMAB [Suspect]
     Active Substance: INFLIXIMAB
     Indication: Pulmonary sarcoidosis
     Route: 041
  2. AZATHIOPRINE [Suspect]
     Active Substance: AZATHIOPRINE
     Indication: Pulmonary sarcoidosis
     Route: 065
  3. PREDNISOLONE [Suspect]
     Active Substance: PREDNISOLONE
     Indication: Pulmonary sarcoidosis
     Route: 065

REACTIONS (6)
  - Off label use [Unknown]
  - Hepatotoxicity [Recovered/Resolved]
  - Hypertension [Recovered/Resolved]
  - Depression [Recovered/Resolved]
  - Condition aggravated [Recovered/Resolved]
  - Obesity [Recovered/Resolved]
